FAERS Safety Report 6542630-7 (Version None)
Quarter: 2010Q1

REPORT INFORMATION
  Report Type: 
  Country: None (occurrence: None)
  Receive Date: 20100119
  Receipt Date: 20100106
  Transmission Date: 20100710
  Serious: Yes (Hospitalization)
  Sender: FDA-Public Use
  Company Number: FR-SANOFI-AVENTIS-2010SA000478

PATIENT
  Age: 55 Year
  Sex: Male

DRUGS (8)
  1. XATRAL [Suspect]
     Route: 048
     Dates: start: 20050101, end: 20081222
  2. PREVISCAN [Suspect]
     Indication: ATRIAL FIBRILLATION
     Route: 048
     Dates: start: 20080401, end: 20081222
  3. ALLOPURINOL [Suspect]
     Route: 048
     Dates: start: 20050101, end: 20081222
  4. HERBAL PREPARATION [Suspect]
     Dates: start: 20050101, end: 20081222
  5. CARDENSIEL [Concomitant]
  6. LASILIX [Concomitant]
  7. DITROPAN [Concomitant]
  8. OMEPRAZOLE [Concomitant]

REACTIONS (5)
  - CHRONIC HEPATITIS [None]
  - CYTOLYTIC HEPATITIS [None]
  - HEPATIC FAILURE [None]
  - HEPATITIS ACUTE [None]
  - JAUNDICE CHOLESTATIC [None]
